FAERS Safety Report 16160363 (Version 3)
Quarter: 2019Q2

REPORT INFORMATION
  Report Type: Report from Study
  Country: US (occurrence: US)
  Receive Date: 20190404
  Receipt Date: 20190521
  Transmission Date: 20190711
  Serious: No
  Sender: FDA-Public Use
  Company Number: US-ALEXION PHARMACEUTICALS INC.-A201905066

PATIENT
  Sex: Female

DRUGS (1)
  1. SOLIRIS [Suspect]
     Active Substance: ECULIZUMAB
     Indication: PRODUCT USED FOR UNKNOWN INDICATION
     Dosage: UNK
     Route: 065

REACTIONS (8)
  - Dysgeusia [Not Recovered/Not Resolved]
  - Headache [Unknown]
  - Myalgia [Not Recovered/Not Resolved]
  - Abdominal pain upper [Unknown]
  - Feeling hot [Unknown]
  - Vision blurred [Unknown]
  - Nausea [Not Recovered/Not Resolved]
  - Swelling face [Unknown]
